FAERS Safety Report 5748981-8 (Version None)
Quarter: 2008Q2

REPORT INFORMATION
  Report Type: 
  Country: None (occurrence: None)
  Receive Date: 20080527
  Receipt Date: 20080520
  Transmission Date: 20081010
  Serious: Yes (Hospitalization)
  Sender: FDA-Public Use
  Company Number: US-BRISTOL-MYERS SQUIBB COMPANY-14203582

PATIENT
  Age: 84 Year
  Sex: Male

DRUGS (5)
  1. PRINIVIL TABS 20 MG [Suspect]
     Indication: HYPERTENSION
     Route: 048
  2. ATENOLOL [Suspect]
  3. METFORMIN HCL [Suspect]
  4. GLYBURIDE [Suspect]
  5. TERAZOSIN HCL [Suspect]

REACTIONS (3)
  - ASTHENIA [None]
  - HYPOGLYCAEMIA [None]
  - HYPOTENSION [None]
